FAERS Safety Report 7518734-9 (Version None)
Quarter: 2011Q2

REPORT INFORMATION
  Report Type: 
  Country: None (occurrence: None)
  Receive Date: 20110602
  Receipt Date: 20110523
  Transmission Date: 20111010
  Serious: Yes (Hospitalization, Other)
  Sender: FDA-Public Use
  Company Number: GB-PFIZER INC-2005059582

PATIENT
  Age: 77 Year
  Sex: Male

DRUGS (14)
  1. FLOXACILLIN SODIUM [Concomitant]
     Route: 042
     Dates: start: 20041230, end: 20050104
  2. PROPOFOL [Concomitant]
     Route: 042
     Dates: start: 20050102, end: 20050105
  3. LANSOPRAZOLE [Suspect]
     Indication: PROPHYLAXIS
     Route: 048
     Dates: start: 20050127, end: 20050201
  4. NOREPINEPHRINE BITARTRATE [Concomitant]
     Route: 042
     Dates: start: 20050102, end: 20050111
  5. INSULIN [Concomitant]
     Route: 042
  6. LINEZOLID [Suspect]
     Indication: STAPHYLOCOCCAL INFECTION
     Route: 042
     Dates: start: 20050104, end: 20050120
  7. PANTOPRAZOLE SODIUM [Suspect]
     Indication: PEPTIC ULCER
     Route: 042
     Dates: start: 20050102, end: 20050127
  8. AMIODARONE HCL [Concomitant]
     Route: 042
     Dates: start: 20050102, end: 20050106
  9. FUROSEMIDE [Concomitant]
     Route: 042
  10. METOCLOPRAMIDE [Concomitant]
     Route: 042
     Dates: start: 20041224, end: 20050101
  11. ALFENTANIL [Concomitant]
     Route: 042
     Dates: start: 20050102, end: 20050124
  12. TEICOPLANIN [Concomitant]
     Route: 042
     Dates: start: 20041231, end: 20050104
  13. PIPERACILLIN [Concomitant]
     Route: 042
     Dates: start: 20041231, end: 20050117
  14. HEPARIN [Concomitant]
     Route: 042
     Dates: start: 20041228

REACTIONS (2)
  - RENAL FAILURE ACUTE [None]
  - LIVER FUNCTION TEST ABNORMAL [None]
